FAERS Safety Report 6177719-8 (Version None)
Quarter: 2009Q2

REPORT INFORMATION
  Report Type: 
  Country: None (occurrence: None)
  Receive Date: 20090504
  Receipt Date: 20090422
  Transmission Date: 20091009
  Serious: Yes (Hospitalization)
  Sender: FDA-Public Use
  Company Number: FR-PFIZER INC-2009201394

PATIENT

DRUGS (12)
  1. TRIFLUCAN [Suspect]
     Dosage: 200 MG, 1X/DAY
     Route: 048
     Dates: start: 20090223, end: 20090225
  2. THYMOGLOBULIN [Suspect]
     Dosage: 189 MG, 1X/DAY
     Route: 042
     Dates: start: 20090224, end: 20090226
  3. LASIX [Suspect]
     Indication: PROPHYLAXIS
     Dosage: 20 MG, 1X/DAY
     Route: 042
     Dates: start: 20090223, end: 20090224
  4. SOLU-MEDROL [Concomitant]
     Dosage: 108 MG, 1X/DAY
     Route: 042
     Dates: start: 20090224, end: 20090301
  5. TRAMADOL HCL [Concomitant]
     Dosage: 50 MG, 4X/DAY
     Route: 048
     Dates: start: 20090223
  6. POLARAMINE [Concomitant]
     Dosage: 5 MG, 1X/DAY
     Route: 042
     Dates: start: 20090224, end: 20090301
  7. VALACYCLOVIR HCL [Concomitant]
     Dosage: 500 MG, 2X/DAY
     Route: 048
     Dates: start: 20090224
  8. NEORAL [Concomitant]
     Dosage: 250 MG, 1X/DAY
  9. SOLUPRED [Concomitant]
     Dosage: 100 MG, 1X/DAY
  10. NEXIUM [Concomitant]
     Dosage: 20 MG, 1X/DAY
  11. NEORECORMON ^BOEHRINGER MANNHEIM^ [Concomitant]
     Dosage: 30000 IU, WEEKLY
  12. ACTRAPID [Concomitant]
     Dosage: UNK

REACTIONS (2)
  - HEPATOCELLULAR INJURY [None]
  - SERUM SICKNESS-LIKE REACTION [None]
